FAERS Safety Report 11411131 (Version 2)
Quarter: 2015Q3

REPORT INFORMATION
  Report Type: Spontaneous
  Country: US (occurrence: US)
  Receive Date: 20150821
  Receipt Date: 20150903
  Transmission Date: 20151125
  Serious: No
  Sender: FDA-Public Use
  Company Number: US-ELI_LILLY_AND_COMPANY-US201003003646

PATIENT
  Age: 66 Year
  Sex: Female

DRUGS (6)
  1. GLUCOSE [Concomitant]
     Active Substance: DEXTROSE
     Indication: BLOOD GLUCOSE DECREASED
  2. HUMULIN N [Suspect]
     Active Substance: INSULIN HUMAN
     Dosage: 55 U, EACH EVENING
     Dates: start: 20100312, end: 201003
  3. HUMULIN N [Suspect]
     Active Substance: INSULIN HUMAN
     Dosage: 44 U, EACH EVENING
     Dates: start: 201003
  4. HUMALOG [Suspect]
     Active Substance: INSULIN LISPRO
     Dosage: 12 U, 3/D
     Dates: start: 20100305
  5. NOVOLOG [Concomitant]
     Active Substance: INSULIN ASPART
  6. HUMULIN N [Suspect]
     Active Substance: INSULIN HUMAN
     Dosage: 50 U, EACH EVENING
     Dates: start: 20100305, end: 201003

REACTIONS (5)
  - Blood glucose decreased [Not Recovered/Not Resolved]
  - Feeling abnormal [Unknown]
  - Sleep disorder [Not Recovered/Not Resolved]
  - Blood glucose increased [Recovered/Resolved]
  - Drug ineffective [Recovered/Resolved]

NARRATIVE: CASE EVENT DATE: 201003
